FAERS Safety Report 18333944 (Version 1)
Quarter: 2020Q3

REPORT INFORMATION
  Report Type: Spontaneous
  Country: US (occurrence: US)
  Receive Date: 20200930
  Receipt Date: 20200930
  Transmission Date: 20201103
  Serious: No
  Sender: FDA-Public Use
  Company Number: None

PATIENT
  Age: 43 Year
  Sex: Female
  Weight: 47.7 kg

DRUGS (4)
  1. CLINDAMYCIN HCL 300 MG CAPSULE [Suspect]
     Active Substance: CLINDAMYCIN HYDROCHLORIDE
     Indication: MASTITIS
     Dosage: ?          QUANTITY:30 CAPSULE(S);?
     Route: 048
     Dates: start: 20200927, end: 20200928
  2. MYKIND ORGANICS PRENATAL ONCE DAILY [Concomitant]
  3. NATURALS PRENATAL DHA [Concomitant]
  4. MYKIND ORGANICS PLANT IRON + ORGANIC HERBS [Concomitant]

REACTIONS (3)
  - Dizziness [None]
  - Diarrhoea [None]
  - Rash [None]

NARRATIVE: CASE EVENT DATE: 20200927
